FAERS Safety Report 6753739-7 (Version None)
Quarter: 2010Q2

REPORT INFORMATION
  Report Type: 
  Country: None (occurrence: None)
  Receive Date: 20100603
  Receipt Date: 20100527
  Transmission Date: 20101027
  Serious: Yes (Death)
  Sender: FDA-Public Use
  Company Number: AT-ROCHE-705896

PATIENT
  Age: 43 Year
  Sex: Female
  Weight: 31.8 kg

DRUGS (3)
  1. AVASTIN [Suspect]
     Dosage: ABSOLUTE: 1000, AS FIRST LINE THERAPY
     Route: 065
     Dates: start: 20090729, end: 20091201
  2. DOCETAXEL [Concomitant]
  3. EPIRUBICIN [Concomitant]

REACTIONS (1)
  - GENERAL PHYSICAL HEALTH DETERIORATION [None]
